FAERS Safety Report 11203295 (Version 2)
Quarter: 2015Q3

REPORT INFORMATION
  Report Type: Spontaneous
  Country: US (occurrence: US)
  Receive Date: 20150619
  Receipt Date: 20150804
  Transmission Date: 20151125
  Serious: No
  Sender: FDA-Public Use
  Company Number: US-PFIZER INC-2015203847

PATIENT
  Age: 52 Year
  Sex: Female

DRUGS (4)
  1. OXYCODONE [Concomitant]
     Active Substance: OXYCODONE
     Dosage: UNK (^10/325^ MG)
     Dates: start: 20150615
  2. LYRICA [Suspect]
     Active Substance: PREGABALIN
     Indication: NERVE INJURY
     Dosage: 150 MG, 2X/DAY
     Dates: start: 201506, end: 201506
  3. LYRICA [Suspect]
     Active Substance: PREGABALIN
     Indication: NEURALGIA
  4. LYRICA [Suspect]
     Active Substance: PREGABALIN
     Indication: SCIATICA

REACTIONS (8)
  - Nausea [Unknown]
  - Heart rate increased [Unknown]
  - Feeling drunk [Unknown]
  - Feeling abnormal [Unknown]
  - Vertigo [Unknown]
  - Feeling jittery [Unknown]
  - Drug intolerance [Unknown]
  - Mobility decreased [Unknown]

NARRATIVE: CASE EVENT DATE: 201506
